FAERS Safety Report 8601398-0 (Version None)
Quarter: 2012Q3

REPORT INFORMATION
  Report Type: 
  Country: None (occurrence: None)
  Receive Date: 20120817
  Receipt Date: 20120813
  Transmission Date: 20120928
  Serious: Yes (Disabling)
  Sender: FDA-Public Use
  Company Number: US-PFIZER INC-2012198176

PATIENT
  Sex: Female

DRUGS (2)
  1. NEURONTIN [Suspect]
  2. PREMARIN [Suspect]

REACTIONS (2)
  - BACK PAIN [None]
  - BACK DISORDER [None]
